FAERS Safety Report 5255009-5 (Version None)
Quarter: 2007Q1

REPORT INFORMATION
  Report Type: 
  Country: None (occurrence: None)
  Receive Date: 20070305
  Receipt Date: 20070223
  Transmission Date: 20070707
  Serious: Yes (Other)
  Sender: FDA-Public Use
  Company Number: 2007UW03468

PATIENT
  Age: 46 Year
  Sex: Female

DRUGS (4)
  1. SEROQUEL [Suspect]
     Route: 048
  2. CLOZARIL [Suspect]
  3. RISPERDAL [Suspect]
  4. ABILIFY [Suspect]

REACTIONS (4)
  - DRUG INEFFECTIVE [None]
  - HODGKIN'S DISEASE [None]
  - JAUNDICE [None]
  - NEUTROPENIA [None]
